FAERS Safety Report 19867204 (Version 1)
Quarter: 2021Q3

REPORT INFORMATION
  Report Type: Spontaneous
  Country: US (occurrence: US)
  Receive Date: 20210922
  Receipt Date: 20210922
  Transmission Date: 20211014
  Serious: Yes (Other)
  Sender: FDA-Public Use
  Company Number: US-GLAXOSMITHKLINE-US2021GSK199274

PATIENT
  Sex: Female

DRUGS (2)
  1. ZANTAC [Suspect]
     Active Substance: RANITIDINE HYDROCHLORIDE
     Indication: DYSPEPSIA
     Dosage: 25 MG, 3?4 TIMES PER WEEK, THEN DAILY
     Route: 065
     Dates: start: 199801, end: 200306
  2. ZANTAC [Suspect]
     Active Substance: RANITIDINE HYDROCHLORIDE
     Indication: DYSPEPSIA
     Dosage: 25 MG, 3?4 TIMES PER WEEK, THEN DAILY
     Route: 065
     Dates: start: 199801, end: 200306

REACTIONS (3)
  - Thymoma [Unknown]
  - Breast cancer [Unknown]
  - Ovarian cancer [Unknown]
